FAERS Safety Report 11939378 (Version 1)
Quarter: 2016Q1

REPORT INFORMATION
  Report Type: Spontaneous
  Country: US (occurrence: US)
  Receive Date: 20160122
  Receipt Date: 20160122
  Transmission Date: 20160526
  Serious: Yes (Other)
  Sender: FDA-Public Use
  Company Number: US-PFIZER INC-2016027884

PATIENT
  Sex: Female

DRUGS (1)
  1. LYRICA [Suspect]
     Active Substance: PREGABALIN
     Dosage: UNK

REACTIONS (6)
  - Brain neoplasm [Unknown]
  - Intervertebral disc disorder [Unknown]
  - Type 1 diabetes mellitus [Unknown]
  - Stiff person syndrome [Unknown]
  - Abdominal discomfort [Unknown]
  - Drug ineffective for unapproved indication [Unknown]
